FAERS Safety Report 9416433 (Version 1)
Quarter: 2013Q3

REPORT INFORMATION
  Report Type: Spontaneous
  Country: US (occurrence: US)
  Receive Date: 20130724
  Receipt Date: 20130724
  Transmission Date: 20140515
  Serious: No
  Sender: FDA-Public Use
  Company Number: US-PFIZER INC-2013196802

PATIENT
  Age: 55 Year
  Sex: Female

DRUGS (8)
  1. LYRICA [Suspect]
     Dosage: 200 MG, 3X/DAY
     Route: 048
  2. AMLODIPINE BESILATE [Concomitant]
     Dosage: 10 MG, 1X/DAY
     Route: 048
  3. CLONIDINE HYDROCHLORIDE [Concomitant]
     Dosage: 0.1 MG, 1X/DAY (AT BEDTIME ORALLY ONCE A DAY)
     Route: 048
  4. PRAVASTATIN SODIUM [Concomitant]
     Dosage: 10 MG, 1X/DAY (AT BEDTIME ORALLY ONCE A DAY)
     Route: 048
  5. BUTALBITAL-APAP-CAFFEINE [Concomitant]
     Indication: HEADACHE
     Dosage: 1 DF, (50/325/40 MG TABLET, 1 TABLET AS NEEDED ORALLY EVERY 4 HRS)
     Route: 048
  6. FISH OIL [Concomitant]
     Dosage: 1000 MG, 2X/DAY
     Route: 048
  7. NO FLUSH NIACIN [Concomitant]
     Dosage: 500 MG, 1X/DAY (WITH FOOD)
     Route: 048
  8. PROMETHAZINE HYDROCHLORIDE [Concomitant]
     Indication: NAUSEA
     Dosage: 25 MG, (1 TABLET ORALLY EVERY 6 HOURS AS NEEDED FOR NAUSEA)
     Route: 048

REACTIONS (1)
  - Pain [Unknown]
